FAERS Safety Report 8541745-1 (Version None)
Quarter: 2012Q3

REPORT INFORMATION
  Report Type: 
  Country: None (occurrence: None)
  Receive Date: 20120726
  Receipt Date: 20110830
  Transmission Date: 20120928
  Serious: No
  Sender: FDA-Public Use
  Company Number: US-ASTRAZENECA-2011SE51925

PATIENT
  Age: 39 Year
  Sex: Female
  Weight: 36.3 kg

DRUGS (5)
  1. SEROQUEL [Suspect]
     Route: 048
  2. SEROQUEL [Suspect]
     Indication: ANXIETY
     Route: 048
  3. SEROQUEL [Suspect]
     Route: 048
  4. SEROQUEL [Suspect]
     Indication: SLEEP DISORDER
     Route: 048
  5. REMERON [Suspect]
     Route: 065

REACTIONS (4)
  - MIGRAINE [None]
  - WEIGHT INCREASED [None]
  - OFF LABEL USE [None]
  - HYPERSENSITIVITY [None]
